FAERS Safety Report 9412309 (Version 1)
Quarter: 2013Q3

REPORT INFORMATION
  Report Type: Spontaneous
  Country: PL (occurrence: PL)
  Receive Date: 20130722
  Receipt Date: 20130722
  Transmission Date: 20140515
  Serious: Yes (Other)
  Sender: FDA-Public Use
  Company Number: PL-SANOFI-AVENTIS-2013SA070940

PATIENT
  Age: 51 Year
  Sex: Female
  Weight: 63 kg

DRUGS (3)
  1. ARAVA [Suspect]
     Indication: RHEUMATOID ARTHRITIS
     Route: 048
     Dates: start: 20080820, end: 20121220
  2. METYPRED [Concomitant]
     Dates: start: 20070406
  3. EUTHYROX [Concomitant]
     Dates: start: 1996

REACTIONS (1)
  - Hepatic enzyme increased [Recovered/Resolved]
